FAERS Safety Report 12895547 (Version 1)
Quarter: 2016Q4

REPORT INFORMATION
  Report Type: Spontaneous
  Country: US (occurrence: US)
  Receive Date: 20161030
  Receipt Date: 20161030
  Transmission Date: 20170207
  Serious: No
  Sender: FDA-Public Use
  Company Number: US-009507513-1610USA010334

PATIENT
  Age: 46 Year
  Sex: Male

DRUGS (11)
  1. VYVANSE [Concomitant]
     Active Substance: LISDEXAMFETAMINE DIMESYLATE
  2. VERAPAMIL [Concomitant]
     Active Substance: VERAPAMIL HYDROCHLORIDE
  3. BELSOMRA [Suspect]
     Active Substance: SUVOREXANT
     Indication: INSOMNIA
     Dosage: 10 MG, ONCE DAILY
     Route: 048
     Dates: start: 20160927, end: 2016
  4. TOPAMAX [Concomitant]
     Active Substance: TOPIRAMATE
  5. ATROVENT [Concomitant]
     Active Substance: IPRATROPIUM BROMIDE
  6. JANUVIA [Concomitant]
     Active Substance: SITAGLIPTIN PHOSPHATE
  7. FENOFIBRATE. [Concomitant]
     Active Substance: FENOFIBRATE
  8. DEXILANT [Concomitant]
     Active Substance: DEXLANSOPRAZOLE
  9. VICTOZA [Concomitant]
     Active Substance: LIRAGLUTIDE
  10. ATORVASTATIN [Concomitant]
     Active Substance: ATORVASTATIN
  11. PROAIR HFA [Concomitant]
     Active Substance: ALBUTEROL SULFATE

REACTIONS (1)
  - Euphoric mood [Unknown]

NARRATIVE: CASE EVENT DATE: 20160927
